FAERS Safety Report 7234571-7 (Version None)
Quarter: 2011Q1

REPORT INFORMATION
  Report Type: 
  Country: None (occurrence: None)
  Receive Date: 20110120
  Receipt Date: 20110112
  Transmission Date: 20110831
  Serious: Yes (Hospitalization)
  Sender: FDA-Public Use
  Company Number: NL-AMGEN-NLDSP2011002675

PATIENT

DRUGS (5)
  1. METHOTREXATE [Concomitant]
     Indication: RHEUMATOID ARTHRITIS
     Dosage: 15 MG, WEEKLY
  2. ACCUPRIL [Concomitant]
     Indication: ARRHYTHMIA
     Dosage: 20 MG, 1X/DAY
  3. LESCOL [Concomitant]
     Indication: HYPERTENSION
     Dosage: 80 MG, 1X/DAY
  4. ENBREL [Suspect]
     Indication: RHEUMATOID ARTHRITIS
     Dosage: 50 MG, WEEKLY
     Route: 058
     Dates: start: 20091001, end: 20101207
  5. SOTALOL [Concomitant]
     Dosage: 80 MG, 3X/DAY

REACTIONS (1)
  - RENAL CANCER [None]
